FAERS Safety Report 23088920 (Version 1)
Quarter: 2023Q4

REPORT INFORMATION
  Report Type: Spontaneous
  Country: GB (occurrence: GB)
  Receive Date: 20231020
  Receipt Date: 20231020
  Transmission Date: 20240110
  Serious: Yes (Hospitalization)
  Sender: FDA-Public Use
  Company Number: GB-MYLANLABS-2023M1110110

PATIENT
  Age: 4 Decade
  Sex: Male

DRUGS (8)
  1. EMTRICITABINE\TENOFOVIR DISOPROXIL [Suspect]
     Active Substance: EMTRICITABINE\TENOFOVIR DISOPROXIL
     Indication: HIV infection
     Dosage: UNK; RECEIVED UNDER ART THERAPY
     Route: 065
  2. DOLUTEGRAVIR [Suspect]
     Active Substance: DOLUTEGRAVIR
     Indication: HIV infection
     Dosage: 50 MILLIGRAM, BID; RECEIVED UNDER ART THERAPY
     Route: 065
  3. DORAVIRINE [Suspect]
     Active Substance: DORAVIRINE
     Indication: HIV infection
     Dosage: 100 MILLIGRAM, BID; RECEIVED UNDER ART THERAPY
     Route: 065
  4. AZITHROMYCIN [Concomitant]
     Active Substance: AZITHROMYCIN
     Indication: Disseminated mycobacterium avium complex infection
     Dosage: UNK
     Route: 065
  5. CLARITHROMYCIN [Concomitant]
     Active Substance: CLARITHROMYCIN
     Indication: Disseminated mycobacterium avium complex infection
     Dosage: UNK
     Route: 065
  6. RIFABUTIN [Concomitant]
     Active Substance: RIFABUTIN
     Indication: Disseminated mycobacterium avium complex infection
     Dosage: UNK
     Route: 065
  7. LINEZOLID [Concomitant]
     Active Substance: LINEZOLID
     Indication: Disseminated mycobacterium avium complex infection
     Dosage: UNK
     Route: 065
  8. ETHAMBUTOL [Concomitant]
     Active Substance: ETHAMBUTOL HYDROCHLORIDE
     Indication: Disseminated mycobacterium avium complex infection
     Dosage: UNK
     Route: 065

REACTIONS (2)
  - Immune reconstitution inflammatory syndrome [Recovering/Resolving]
  - Mesenteric panniculitis [Recovering/Resolving]
